FAERS Safety Report 9264055 (Version 3)
Quarter: 2013Q3

REPORT INFORMATION
  Report Type: Spontaneous
  Country: CA (occurrence: CA)
  Receive Date: 20130430
  Receipt Date: 20130906
  Transmission Date: 20140515
  Serious: Yes (Other)
  Sender: FDA-Public Use
  Company Number: CA-JNJFOC-20130417193

PATIENT
  Sex: 0

DRUGS (2)
  1. NUCYNTA CR [Suspect]
     Indication: BREAKTHROUGH PAIN
     Route: 048
  2. NUCYNTA IR [Suspect]
     Indication: BREAKTHROUGH PAIN
     Route: 048

REACTIONS (1)
  - Amnesia [Unknown]
